FAERS Safety Report 4599268-0 (Version None)
Quarter: 2005Q1

REPORT INFORMATION
  Report Type: 
  Country: None (occurrence: None)
  Receive Date: 20050302
  Receipt Date: 20050302
  Transmission Date: 20050727
  Serious: Yes (Life-Threatening, Other)
  Sender: FDA-Public Use
  Company Number: None

PATIENT
  Age: 78 Year
  Sex: Female

DRUGS (14)
  1. CAPTOPRIL [Suspect]
     Indication: HYPERTENSION
     Dosage: 12.5MG  TID ORAL
     Route: 048
     Dates: start: 20031225, end: 20031226
  2. ACETAMINOPHEN [Concomitant]
  3. MULTI-VITAMIN [Concomitant]
  4. METOCLOPRAMIDE [Concomitant]
  5. DOCUSATE SODIUM [Concomitant]
  6. HUMAN INSULIN REGULAR [Concomitant]
  7. DILTIAZEM [Concomitant]
  8. MODAFENIL [Concomitant]
  9. FUROSEMIDE [Concomitant]
  10. FAMOTIDINE [Concomitant]
  11. AMLODIPINE [Concomitant]
  12. CLONIDINE [Concomitant]
  13. LABETALOL HCL [Concomitant]
  14. LEVOFLOXACIN [Concomitant]

REACTIONS (1)
  - ANGIONEUROTIC OEDEMA [None]
